FAERS Safety Report 20738942 (Version 1)
Quarter: 2022Q2

REPORT INFORMATION
  Report Type: Report from Study
  Country: GB (occurrence: GB)
  Receive Date: 20220422
  Receipt Date: 20220422
  Transmission Date: 20220721
  Serious: Yes (Death, Other)
  Sender: FDA-Public Use
  Company Number: GB-RECORDATI RARE DISEASE INC.-2022001463

PATIENT

DRUGS (8)
  1. DACTINOMYCIN [Suspect]
     Active Substance: DACTINOMYCIN
     Indication: Ewing-like sarcoma
  2. IFOSFAMIDE [Suspect]
     Active Substance: IFOSFAMIDE
     Indication: Ewing-like sarcoma
     Dosage: VIDE REGIMEN
  3. IFOSFAMIDE [Suspect]
     Active Substance: IFOSFAMIDE
     Dosage: VAI REGIMEN
  4. DOXORUBICIN [Suspect]
     Active Substance: DOXORUBICIN
     Indication: Ewing-like sarcoma
     Dosage: VIDE REGIMEN
  5. DOXORUBICIN [Suspect]
     Active Substance: DOXORUBICIN
     Dosage: VAI REGIMEN
  6. VINCRISTINE [Suspect]
     Active Substance: VINCRISTINE
     Indication: Ewing-like sarcoma
     Dosage: VIDE REGIMEN
  7. VINCRISTINE [Suspect]
     Active Substance: VINCRISTINE
     Dosage: VAI REGIMEN
  8. ETOPOSIDE [Suspect]
     Active Substance: ETOPOSIDE
     Indication: Ewing-like sarcoma
     Dosage: VIDE REGIMEN

REACTIONS (2)
  - Malignant neoplasm progression [Fatal]
  - Off label use [Recovered/Resolved]
